FAERS Safety Report 23371901 (Version 1)
Quarter: 2024Q1

REPORT INFORMATION
  Report Type: Spontaneous
  Country: US (occurrence: None)
  Receive Date: 20240105
  Receipt Date: 20240105
  Transmission Date: 20240409
  Serious: No
  Sender: FDA-Public Use
  Company Number: None

PATIENT

DRUGS (2)
  1. MYXREDLIN [Suspect]
     Active Substance: INSULIN HUMAN
     Dosage: OTHER STRENGTH : 100UNITS/100 ML;?
  2. CARDENE [Suspect]
     Active Substance: NICARDIPINE HYDROCHLORIDE
     Dosage: OTHER STRENGTH : 40 MG IN 200 ML;?

REACTIONS (4)
  - Product storage error [None]
  - Product label confusion [None]
  - Product packaging confusion [None]
  - Drug monitoring procedure not performed [None]
